FAERS Safety Report 4312099-1 (Version None)
Quarter: 2004Q1

REPORT INFORMATION
  Report Type: 
  Country: None (occurrence: None)
  Receive Date: 20040303
  Receipt Date: 20040224
  Transmission Date: 20041129
  Serious: Yes (Hospitalization)
  Sender: FDA-Public Use
  Company Number: GB-JNJFOC-20040205456

PATIENT
  Age: 64 Year
  Sex: Female

DRUGS (8)
  1. REMICADE [Suspect]
     Indication: RHEUMATOID ARTHRITIS
     Dosage: 160 MG, INTRAVENOUS
     Route: 042
     Dates: start: 20020418
  2. METHOTREXATE [Concomitant]
  3. FOLIC ACID [Concomitant]
  4. COPROXAMOL (APOREX) [Concomitant]
  5. MELOXICAM (MELOXICAM) [Concomitant]
  6. OMEPRAZOLE [Concomitant]
  7. FOSAMAX [Concomitant]
  8. CALCICHEW (CALCIUM CARBONATE) [Concomitant]

REACTIONS (2)
  - FALL [None]
  - PELVIC FRACTURE [None]
